FAERS Safety Report 18309963 (Version 1)
Quarter: 2020Q3

REPORT INFORMATION
  Report Type: Spontaneous
  Country: US (occurrence: US)
  Receive Date: 20200925
  Receipt Date: 20200925
  Transmission Date: 20201103
  Serious: No
  Sender: FDA-Public Use
  Company Number: US-CELLTRION INC.-2020US024424

PATIENT

DRUGS (1)
  1. HERZUMA [Suspect]
     Active Substance: TRASTUZUMAB-PKRB
     Indication: ENDOMETRIAL NEOPLASM
     Dosage: 596 MG Q 21 DAYS
     Dates: start: 20200629

REACTIONS (1)
  - Off label use [Unknown]
